FAERS Safety Report 5420578-9 (Version None)
Quarter: 2007Q3

REPORT INFORMATION
  Report Type: 
  Country: None (occurrence: None)
  Receive Date: 20070821
  Receipt Date: 20070808
  Transmission Date: 20080115
  Serious: Yes (Hospitalization)
  Sender: FDA-Public Use
  Company Number: FR-JNJFOC-20070803793

PATIENT
  Sex: Female

DRUGS (12)
  1. TRAMADOL HCL [Suspect]
     Indication: SCIATICA
     Route: 048
  2. MYOLASTAN [Suspect]
     Indication: SCIATICA
     Route: 048
  3. OXYNORM [Suspect]
     Indication: SCIATICA
     Route: 048
  4. COAPROVEL [Concomitant]
     Dosage: 300MG/12.5MG
     Route: 065
  5. ATENOLOL [Concomitant]
     Route: 065
  6. PRAVASTATIN [Concomitant]
     Route: 065
  7. LASIX [Concomitant]
     Route: 065
  8. KAYEXALATE [Concomitant]
     Route: 065
  9. SPECIAFOLDINE [Concomitant]
     Route: 065
  10. TARDYFERON [Concomitant]
     Route: 065
  11. CALCIDIA [Concomitant]
     Route: 065
  12. OMEPRAZOLE [Concomitant]
     Route: 065

REACTIONS (2)
  - RENAL FAILURE [None]
  - TOXIC SKIN ERUPTION [None]
